FAERS Safety Report 7016689-7 (Version None)
Quarter: 2010Q3

REPORT INFORMATION
  Report Type: 
  Country: None (occurrence: None)
  Receive Date: 20100927
  Receipt Date: 20100917
  Transmission Date: 20110219
  Serious: Yes (Other)
  Sender: FDA-Public Use
  Company Number: PHHY2010DE63512

PATIENT
  Age: 69 Year
  Sex: Male

DRUGS (6)
  1. VOLTAREN [Suspect]
     Indication: OSTEOARTHRITIS
     Dosage: ONCE DAILY
     Route: 048
  2. LOCOL [Concomitant]
     Indication: HYPERCHOLESTEROLAEMIA
  3. NEXIUM [Concomitant]
     Dosage: UNK
  4. MULTAC [Concomitant]
  5. METOPROLOL SUCCINATE [Concomitant]
     Dosage: UNK
  6. DIOVAN [Concomitant]

REACTIONS (2)
  - ATRIAL FIBRILLATION [None]
  - CARDIOVERSION [None]
